FAERS Safety Report 13494511 (Version 2)
Quarter: 2017Q2

REPORT INFORMATION
  Report Type: Spontaneous
  Country: US (occurrence: US)
  Receive Date: 20170428
  Receipt Date: 20170526
  Transmission Date: 20170830
  Serious: Yes (Other)
  Sender: FDA-Public Use
  Company Number: US-ROCHE-1925947

PATIENT
  Age: 66 Year
  Sex: Female

DRUGS (2)
  1. TEMODAR [Concomitant]
     Active Substance: TEMOZOLOMIDE
     Indication: GLIOBLASTOMA
     Dosage: UNKNOWN
     Route: 065
  2. AVASTIN [Suspect]
     Active Substance: BEVACIZUMAB
     Indication: GLIOBLASTOMA
     Route: 065
     Dates: start: 20170403

REACTIONS (3)
  - Cerebral haemorrhage [Unknown]
  - Hemiparesis [Unknown]
  - Brain injury [Unknown]

NARRATIVE: CASE EVENT DATE: 20170406
